FAERS Safety Report 13472645 (Version 1)
Quarter: 2017Q2

REPORT INFORMATION
  Report Type: Spontaneous
  Country: US (occurrence: US)
  Receive Date: 20170424
  Receipt Date: 20170424
  Transmission Date: 20170830
  Serious: Yes (Other)
  Sender: FDA-Public Use
  Company Number: US-BAYER-2017-073853

PATIENT
  Sex: Female

DRUGS (1)
  1. MIRENA [Suspect]
     Active Substance: LEVONORGESTREL
     Indication: CONTRACEPTION
     Dosage: 20 MCG/24HR, CONT
     Route: 015
     Dates: start: 2016

REACTIONS (10)
  - Breast tenderness [None]
  - Mood swings [None]
  - Nausea [None]
  - Abdominal distension [None]
  - Abdominal pain lower [None]
  - Asthenia [None]
  - Post procedural haemorrhage [None]
  - Vaginal haemorrhage [None]
  - Amenorrhoea [None]
  - Influenza [None]

NARRATIVE: CASE EVENT DATE: 2016
